FAERS Safety Report 10219604 (Version 2)
Quarter: 2014Q2

REPORT INFORMATION
  Report Type: Spontaneous
  Country: FR (occurrence: FR)
  Receive Date: 20140605
  Receipt Date: 20140617
  Transmission Date: 20141212
  Serious: Yes (Other)
  Sender: FDA-Public Use
  Company Number: FR-GLAXOSMITHKLINE-B0999087A

PATIENT
  Age: 65 Year
  Sex: Female
  Weight: 45 kg

DRUGS (4)
  1. MALARONE [Suspect]
     Indication: MALARIA PROPHYLAXIS
     Route: 048
     Dates: start: 201311, end: 201311
  2. TYPHIM [Concomitant]
     Indication: PROPHYLAXIS
     Route: 065
     Dates: start: 20140215, end: 20140215
  3. YELLOW FEVER VACCINE [Concomitant]
     Indication: PROPHYLAXIS
     Route: 065
     Dates: start: 20120915, end: 20120915
  4. GRIPPE VACCINE [Concomitant]
     Indication: PROPHYLAXIS
     Route: 065
     Dates: start: 201310

REACTIONS (5)
  - Polyneuropathy [Not Recovered/Not Resolved]
  - Skin induration [Not Recovered/Not Resolved]
  - Temperature intolerance [Not Recovered/Not Resolved]
  - Paraesthesia [Not Recovered/Not Resolved]
  - Condition aggravated [Not Recovered/Not Resolved]
